FAERS Safety Report 24768508 (Version 1)
Quarter: 2024Q4

REPORT INFORMATION
  Report Type: Spontaneous
  Country: CN (occurrence: CN)
  Receive Date: 20241224
  Receipt Date: 20241224
  Transmission Date: 20250115
  Serious: Yes (Hospitalization)
  Sender: ABBVIE
  Company Number: CN-ABBVIE-6055772

PATIENT
  Age: 79 Year
  Sex: Female
  Weight: 55 kg

DRUGS (4)
  1. VENETOCLAX [Suspect]
     Active Substance: VENETOCLAX
     Indication: Leukaemia
     Dosage: 400 MILLIGRAM
     Route: 048
     Dates: start: 20241122, end: 20241201
  2. OMACETAXINE MEPESUCCINATE [Suspect]
     Active Substance: OMACETAXINE MEPESUCCINATE
     Indication: Leukaemia
     Dosage: 2 MILLIGRAM
     Route: 041
     Dates: start: 20241122, end: 20241125
  3. DECITABINE [Suspect]
     Active Substance: DECITABINE
     Indication: Leukaemia
     Dosage: 30 MILLIGRAM
     Route: 041
     Dates: start: 20241122, end: 20241124
  4. Human Granulocyte Colony-stimulating Factor [Concomitant]
     Indication: Product used for unknown indication
     Dosage: 300 MG QD IH
     Dates: start: 20241212, end: 20241216

REACTIONS (1)
  - Myelosuppression [Recovering/Resolving]

NARRATIVE: CASE EVENT DATE: 20241203
